FAERS Safety Report 10235633 (Version 1)
Quarter: 2014Q2

REPORT INFORMATION
  Report Type: Spontaneous
  Country: US (occurrence: US)
  Receive Date: 20140613
  Receipt Date: 20140613
  Transmission Date: 20141212
  Serious: Yes (Hospitalization)
  Sender: FDA-Public Use
  Company Number: US-SHIRE-US201402718

PATIENT
  Age: 24 Year
  Sex: Male
  Weight: 65.76 kg

DRUGS (2)
  1. ADDERALL XR [Suspect]
     Indication: ATTENTION DEFICIT/HYPERACTIVITY DISORDER
     Dosage: 20 MG, UNKNOWN
     Route: 048
     Dates: end: 2014
  2. ADDERALL XR [Suspect]
     Dosage: UNK UNK, UNKNOWN
     Route: 048
     Dates: start: 2014, end: 20140602

REACTIONS (7)
  - Emotional disorder [Recovered/Resolved]
  - Legal problem [Recovered/Resolved]
  - Social avoidant behaviour [Not Recovered/Not Resolved]
  - Feeling abnormal [Not Recovered/Not Resolved]
  - Hallucination, auditory [Not Recovered/Not Resolved]
  - Eating disorder [Unknown]
  - Weight decreased [Unknown]
